FAERS Safety Report 4997414-8 (Version None)
Quarter: 2006Q2

REPORT INFORMATION
  Report Type: 
  Country: None (occurrence: None)
  Receive Date: 20060509
  Receipt Date: 20050720
  Transmission Date: 20061013
  Serious: Yes (Death)
  Sender: FDA-Public Use
  Company Number: US-MERCK-0507USA03185

PATIENT
  Age: 49 Year
  Sex: Male
  Weight: 130 kg

DRUGS (3)
  1. VIOXX [Suspect]
     Indication: OSTEOARTHRITIS
     Route: 048
     Dates: start: 20020814, end: 20031219
  2. VIOXX [Suspect]
     Route: 048
     Dates: start: 20020814, end: 20031219
  3. ZOCOR [Concomitant]
     Route: 048

REACTIONS (6)
  - ACUTE MYOCARDIAL INFARCTION [None]
  - ARTERIOSCLEROSIS [None]
  - CORONARY ARTERY OCCLUSION [None]
  - CORONARY ARTERY THROMBOSIS [None]
  - ERECTILE DYSFUNCTION [None]
  - THROMBOSIS [None]
